FAERS Safety Report 19042114 (Version 3)
Quarter: 2021Q2

REPORT INFORMATION
  Report Type: Report from Study
  Country: US (occurrence: US)
  Receive Date: 20210322
  Receipt Date: 20210524
  Transmission Date: 20210717
  Serious: Yes (Other)
  Sender: FDA-Public Use
  Company Number: NVSC2021US059782

PATIENT
  Age: 84 Year
  Sex: Female

DRUGS (2)
  1. PIQRAY [Suspect]
     Active Substance: ALPELISIB
     Indication: BREAST CANCER
     Dosage: 300 MG, QD (TABLET)
     Route: 048
     Dates: start: 20210311
  2. PIQRAY [Suspect]
     Active Substance: ALPELISIB
     Dosage: 250 MG, QD
     Route: 048

REACTIONS (5)
  - Diarrhoea [Not Recovered/Not Resolved]
  - Renal impairment [Unknown]
  - Blood glucose increased [Unknown]
  - Joint swelling [Unknown]
  - Oral pain [Unknown]

NARRATIVE: CASE EVENT DATE: 20210312
